FAERS Safety Report 10169383 (Version 2)
Quarter: 2014Q2

REPORT INFORMATION
  Report Type: Spontaneous
  Country: FR (occurrence: FR)
  Receive Date: 20140513
  Receipt Date: 20140530
  Transmission Date: 20141212
  Serious: Yes (Other)
  Sender: FDA-Public Use
  Company Number: FR-TEVA-480031ISR

PATIENT
  Age: 25 Year
  Sex: Female

DRUGS (1)
  1. AMOXICILLINE / ACIDE CLAVULANIQUE TEVA 500MG/62.5MG ADULTES [Suspect]
     Indication: SKIN INFECTION
     Dosage: 4 DOSAGE FORMS DAILY;
     Route: 048
     Dates: start: 20130806, end: 20130807

REACTIONS (7)
  - Vomiting [Not Recovered/Not Resolved]
  - Abdominal pain [Not Recovered/Not Resolved]
  - Diarrhoea [Not Recovered/Not Resolved]
  - Vertigo [Not Recovered/Not Resolved]
  - Fall [Not Recovered/Not Resolved]
  - Craniocerebral injury [Unknown]
  - Loss of consciousness [Unknown]
